FAERS Safety Report 7987482-3 (Version None)
Quarter: 2011Q4

REPORT INFORMATION
  Report Type: 
  Country: None (occurrence: None)
  Receive Date: 20111216
  Receipt Date: 20111205
  Transmission Date: 20120403
  Serious: Yes (Other)
  Sender: FDA-Public Use
  Company Number: PHEH2011US010952

PATIENT

DRUGS (2)
  1. LATUDA [Concomitant]
     Dosage: 40 MG, UNK
  2. CLOZARIL [Suspect]
     Dosage: 400 MG, DAILY

REACTIONS (2)
  - PSYCHOTIC DISORDER [None]
  - ANTIPSYCHOTIC DRUG LEVEL ABOVE THERAPEUTIC [None]
